FAERS Safety Report 16930381 (Version 1)
Quarter: 2019Q4

REPORT INFORMATION
  Report Type: Spontaneous
  Country: US (occurrence: US)
  Receive Date: 20191017
  Receipt Date: 20191017
  Transmission Date: 20200122
  Serious: No
  Sender: FDA-Public Use
  Company Number: US-UNIQUE PHARMACEUTICAL LABORATORIES-2019RIS00421

PATIENT
  Age: 26 Year
  Sex: Female
  Weight: 52.61 kg

DRUGS (2)
  1. UNSPECIFIED MEDICATION FOR GI SYMPTOMS [Concomitant]
  2. ATENOLOL. [Suspect]
     Active Substance: ATENOLOL
     Indication: POSTURAL ORTHOSTATIC TACHYCARDIA SYNDROME
     Dosage: 12.5 MG, 1X/DAY
     Route: 048
     Dates: start: 20190725

REACTIONS (3)
  - Vertigo [Not Recovered/Not Resolved]
  - Nausea [Not Recovered/Not Resolved]
  - Off label use [Not Recovered/Not Resolved]

NARRATIVE: CASE EVENT DATE: 20190725
